FAERS Safety Report 12497099 (Version 3)
Quarter: 2016Q4

REPORT INFORMATION
  Report Type: Report from Study
  Country: PL (occurrence: PL)
  Receive Date: 20160624
  Receipt Date: 20161026
  Transmission Date: 20170207
  Serious: Yes (Other)
  Sender: FDA-Public Use
  Company Number: PHHY2016PL084409

PATIENT
  Age: 48 Year
  Sex: Female

DRUGS (1)
  1. TASIGNA [Suspect]
     Active Substance: NILOTINIB
     Indication: CHRONIC MYELOID LEUKAEMIA
     Dosage: 800 MG, QD
     Route: 065
     Dates: start: 20151016

REACTIONS (4)
  - Second primary malignancy [Recovered/Resolved]
  - Mucosal inflammation [Recovered/Resolved]
  - Microcytic anaemia [Recovered/Resolved]
  - Squamous cell carcinoma of the tongue [Recovered/Resolved]

NARRATIVE: CASE EVENT DATE: 20160324
